FAERS Safety Report 9773002 (Version 1)
Quarter: 2013Q4

REPORT INFORMATION
  Report Type: Spontaneous
  Country: MY (occurrence: MY)
  Receive Date: 20131219
  Receipt Date: 20131219
  Transmission Date: 20140711
  Serious: Yes (Other)
  Sender: FDA-Public Use
  Company Number: MY-PFIZER INC-2013363263

PATIENT
  Sex: Female

DRUGS (2)
  1. LIPITOR [Suspect]
  2. OLMETEC [Concomitant]

REACTIONS (4)
  - Fall [Unknown]
  - Lower limb fracture [Recovered/Resolved]
  - Faeces discoloured [Unknown]
  - Blood pressure increased [Unknown]
